FAERS Safety Report 24229728 (Version 3)
Quarter: 2024Q3

REPORT INFORMATION
  Report Type: Spontaneous
  Country: CZ (occurrence: CZ)
  Receive Date: 20240820
  Receipt Date: 20240924
  Transmission Date: 20241016
  Serious: No
  Sender: MYLAN
  Company Number: CZ-MYLANLABS-2024M1075452

PATIENT
  Sex: Female

DRUGS (1)
  1. EPIPEN [Suspect]
     Active Substance: EPINEPHRINE
     Indication: Product used for unknown indication
     Dosage: UNK (DOSE WAS ADMINISTERED TO HER LEG)
     Route: 065
     Dates: start: 202408, end: 202408

REACTIONS (3)
  - Product quality issue [Unknown]
  - Malaise [Recovered/Resolved]
  - Accidental exposure to product [Unknown]

NARRATIVE: CASE EVENT DATE: 20240801
